FAERS Safety Report 19008044 (Version 1)
Quarter: 2021Q1

REPORT INFORMATION
  Report Type: Spontaneous
  Country: US (occurrence: US)
  Receive Date: 20210315
  Receipt Date: 20210315
  Transmission Date: 20210420
  Serious: Yes (Hospitalization, Other)
  Sender: FDA-Public Use
  Company Number: US-AMGEN-USASP2021036665

PATIENT
  Age: 46 Year
  Sex: Male

DRUGS (3)
  1. BLINCYTO [Suspect]
     Active Substance: BLINATUMOMAB
     Dosage: 9 MICROGRAM, QD
     Route: 065
     Dates: start: 20210222, end: 202102
  2. BLINCYTO [Suspect]
     Active Substance: BLINATUMOMAB
     Indication: DISEASE RECURRENCE
     Dosage: UNK
     Route: 065
  3. BLINCYTO [Suspect]
     Active Substance: BLINATUMOMAB
     Dosage: 28 MICROGRAM, QD
     Route: 065
     Dates: start: 202102, end: 2021

REACTIONS (10)
  - Depression [Unknown]
  - Neutrophil count decreased [Unknown]
  - Confusional state [Unknown]
  - Cystitis [Unknown]
  - Neurotoxicity [Unknown]
  - Blood culture positive [Unknown]
  - Pyrexia [Unknown]
  - Unevaluable event [Unknown]
  - Balance disorder [Unknown]
  - Tremor [Unknown]

NARRATIVE: CASE EVENT DATE: 202102
